FAERS Safety Report 7230741-2 (Version None)
Quarter: 2011Q1

REPORT INFORMATION
  Report Type: 
  Country: None (occurrence: None)
  Receive Date: 20110118
  Receipt Date: 20101202
  Transmission Date: 20110831
  Serious: No
  Sender: FDA-Public Use
  Company Number: US-PFIZER INC-2010163870

PATIENT

DRUGS (1)
  1. PROTONIX [Suspect]

REACTIONS (2)
  - NAUSEA [None]
  - DIARRHOEA [None]
